FAERS Safety Report 8100542-1 (Version None)
Quarter: 2012Q1

REPORT INFORMATION
  Report Type: 
  Country: None (occurrence: None)
  Receive Date: 20120129
  Receipt Date: 20111203
  Transmission Date: 20120608
  Serious: No
  Sender: FDA-Public Use
  Company Number: US-ABBOTT-11P-163-0873298-00

PATIENT
  Sex: Female

DRUGS (9)
  1. XANAX [Concomitant]
     Indication: ANXIETY
     Dosage: AT BEDTIME
  2. VIT C [Concomitant]
     Indication: PRODUCT USED FOR UNKNOWN INDICATION
  3. PROTONIX [Concomitant]
     Indication: GASTROOESOPHAGEAL REFLUX DISEASE
     Dosage: DAILY
  4. SIMVASTATIN [Concomitant]
     Indication: PRODUCT USED FOR UNKNOWN INDICATION
  5. HUMIRA [Suspect]
     Indication: COLITIS ULCERATIVE
     Dosage: LOADING DOSE
     Dates: start: 20111105, end: 20111105
  6. ZOCOR [Concomitant]
     Indication: BLOOD CHOLESTEROL INCREASED
     Dosage: DAILY
  7. PREDNISONE TAB [Concomitant]
     Indication: CROHN'S DISEASE
     Dosage: 20MG DAILY WAS PRESCRIBED, PATIENT IS ONLY TAKING 10MG
  8. HUMIRA [Suspect]
  9. HUMIRA [Suspect]

REACTIONS (12)
  - NERVOUSNESS [None]
  - NASOPHARYNGITIS [None]
  - SECRETION DISCHARGE [None]
  - COUGH [None]
  - NASAL CONGESTION [None]
  - SENSORY DISTURBANCE [None]
  - INJECTION SITE HAEMATOMA [None]
  - PAIN [None]
  - FATIGUE [None]
  - FORMICATION [None]
  - ORAL HERPES [None]
  - THROAT IRRITATION [None]
